FAERS Safety Report 8347377-2 (Version None)
Quarter: 2012Q2

REPORT INFORMATION
  Report Type: 
  Country: None (occurrence: None)
  Receive Date: 20120509
  Receipt Date: 20120426
  Transmission Date: 20120825
  Serious: Yes (Hospitalization)
  Sender: FDA-Public Use
  Company Number: RU-TEVA-336629ISR

PATIENT
  Age: 66 Year
  Sex: Male

DRUGS (1)
  1. SIMVASTATIN [Suspect]
     Route: 048

REACTIONS (5)
  - NAUSEA [None]
  - DIARRHOEA [None]
  - HYPERHIDROSIS [None]
  - VOMITING [None]
  - HYPOTONIA [None]
